FAERS Safety Report 5679447-1 (Version None)
Quarter: 2008Q1

REPORT INFORMATION
  Report Type: 
  Country: None (occurrence: None)
  Receive Date: 20080321
  Receipt Date: 20080311
  Transmission Date: 20080703
  Serious: Yes (Other)
  Sender: FDA-Public Use
  Company Number: 2008AL001614

PATIENT
  Sex: Male

DRUGS (1)
  1. FLUOXETINE [Suspect]
     Dosage: 120 MG; QD; PO
     Route: 048

REACTIONS (9)
  - ALTERED STATE OF CONSCIOUSNESS [None]
  - ANHEDONIA [None]
  - BURNING SENSATION [None]
  - DISORIENTATION [None]
  - INCORRECT DOSE ADMINISTERED [None]
  - INSOMNIA [None]
  - MEMORY IMPAIRMENT [None]
  - PARAESTHESIA [None]
  - TREMOR [None]
